FAERS Safety Report 4839869-5 (Version None)
Quarter: 2005Q4

REPORT INFORMATION
  Report Type: 
  Country: None (occurrence: None)
  Receive Date: 20051129
  Receipt Date: 20051115
  Transmission Date: 20060501
  Serious: Yes (Other)
  Sender: FDA-Public Use
  Company Number: PHFR2005GB03774

PATIENT
  Age: 79 Year
  Sex: Male

DRUGS (1)
  1. CLOZARIL [Suspect]
     Indication: SCHIZOPHRENIA
     Route: 065
     Dates: start: 20051031

REACTIONS (3)
  - ASTHENIA [None]
  - DYSARTHRIA [None]
  - HYPOTONIA [None]
